FAERS Safety Report 9551038 (Version 3)
Quarter: 2013Q4

REPORT INFORMATION
  Report Type: Spontaneous
  Country: JP (occurrence: JP)
  Receive Date: 20130925
  Receipt Date: 20131016
  Transmission Date: 20140711
  Serious: Yes (Life-Threatening, Hospitalization, Other)
  Sender: FDA-Public Use
  Company Number: JP-SANOFI-AVENTIS-2013SA093763

PATIENT
  Age: 44 Year
  Sex: Male

DRUGS (6)
  1. CRAVIT [Suspect]
     Indication: PNEUMONIA
     Route: 042
     Dates: start: 20130723, end: 20130726
  2. MYSLEE [Suspect]
     Indication: PRODUCT USED FOR UNKNOWN INDICATION
     Route: 065
     Dates: start: 20130724
  3. DIAMOX [Suspect]
     Indication: PRODUCT USED FOR UNKNOWN INDICATION
     Route: 065
     Dates: start: 20130723
  4. VANCOMYCIN [Suspect]
     Indication: PNEUMONIA
     Route: 065
     Dates: start: 20130725, end: 20130727
  5. TAKEPRON [Suspect]
     Indication: PRODUCT USED FOR UNKNOWN INDICATION
     Route: 065
     Dates: start: 20130718
  6. MAGLAX [Suspect]
     Indication: PRODUCT USED FOR UNKNOWN INDICATION
     Route: 065
     Dates: start: 20130723

REACTIONS (1)
  - Toxic epidermal necrolysis [Recovered/Resolved]
